FAERS Safety Report 6517600-5 (Version None)
Quarter: 2009Q4

REPORT INFORMATION
  Report Type: 
  Country: None (occurrence: None)
  Receive Date: 20091224
  Receipt Date: 20091214
  Transmission Date: 20100525
  Serious: Yes (Hospitalization, Other)
  Sender: FDA-Public Use
  Company Number: PHHY2009JP47212

PATIENT
  Sex: Female
  Weight: 48 kg

DRUGS (3)
  1. LOCHOL [Suspect]
     Indication: DYSLIPIDAEMIA
     Dosage: 30 MG/DAY
     Route: 048
     Dates: start: 20090509, end: 20090630
  2. LOCHOL [Suspect]
     Dosage: 30MG/DAY
     Route: 048
     Dates: start: 20090803
  3. LOCHOL [Suspect]
     Dosage: 30 MG/DAY
     Route: 048
     Dates: start: 20091015, end: 20091016

REACTIONS (6)
  - ABDOMINAL PAIN UPPER [None]
  - CHOLELITHIASIS [None]
  - CHOLELITHOTOMY [None]
  - CHROMATURIA [None]
  - HEPATIC FUNCTION ABNORMAL [None]
  - PYREXIA [None]
